FAERS Safety Report 20080070 (Version 2)
Quarter: 2021Q4

REPORT INFORMATION
  Report Type: Report from Study
  Country: FR (occurrence: FR)
  Receive Date: 20211117
  Receipt Date: 20211122
  Transmission Date: 20220303
  Serious: Yes (Other)
  Sender: FDA-Public Use
  Company Number: FR-ROCHE-2874545

PATIENT
  Age: 61 Year
  Sex: Male
  Weight: 68 kg

DRUGS (18)
  1. CARBOPLATIN [Suspect]
     Active Substance: CARBOPLATIN
     Indication: Non-small cell lung cancer metastatic
     Dosage: UNK
     Route: 065
     Dates: start: 20191118, end: 20200224
  2. CARBOPLATIN [Suspect]
     Active Substance: CARBOPLATIN
     Indication: Non-small cell lung cancer
  3. PACLITAXEL [Suspect]
     Active Substance: PACLITAXEL
     Indication: Non-small cell lung cancer metastatic
     Dosage: UNK
     Route: 065
     Dates: start: 20191118, end: 20200224
  4. PACLITAXEL [Suspect]
     Active Substance: PACLITAXEL
     Indication: Non-small cell lung cancer
  5. ATEZOLIZUMAB [Suspect]
     Active Substance: ATEZOLIZUMAB
     Indication: Non-small cell lung cancer metastatic
     Dosage: 1200 MILLIGRAM (DOSE LAST STUDY DRUG ADMIN PRIOR AE IS 1200 MG START DATE OF MOST RECENT DOSE)
     Route: 041
     Dates: start: 20190715
  6. ATEZOLIZUMAB [Suspect]
     Active Substance: ATEZOLIZUMAB
     Indication: Non-small cell lung cancer
  7. PEMETREXED [Concomitant]
     Active Substance: PEMETREXED
     Dosage: UNK
  8. SMECTA                             /07327601/ [Concomitant]
     Dosage: UNK UNK, TID
     Dates: start: 20191228, end: 20191230
  9. GEMCITABINE [Concomitant]
     Active Substance: GEMCITABINE
     Dosage: UNK
  10. NIVOLUMAB [Concomitant]
     Active Substance: NIVOLUMAB
     Dosage: UNK
  11. PANTOPRAZOLE [Concomitant]
     Active Substance: PANTOPRAZOLE
     Dosage: UNK
     Dates: start: 20191229
  12. PRIMPERAN [Concomitant]
     Active Substance: METOCLOPRAMIDE HYDROCHLORIDE
     Dosage: UNK
     Dates: start: 20191230, end: 20191231
  13. FOLIC ACID [Concomitant]
     Active Substance: FOLIC ACID
     Dosage: UNK UNK, BID
     Dates: start: 20191230, end: 20191231
  14. CISPLATIN [Concomitant]
     Active Substance: CISPLATIN
     Dosage: UNK
  15. RACECADOTRIL [Concomitant]
     Active Substance: RACECADOTRIL
     Dosage: UNK UNK, BID
     Dates: start: 20191230, end: 20191231
  16. DAFALGAN [Concomitant]
     Active Substance: ACETAMINOPHEN
     Dosage: UNK
     Dates: start: 20191229
  17. ERYTHROPOIETIN [Concomitant]
     Active Substance: ERYTHROPOIETIN
     Dosage: UNK
     Dates: start: 20200217
  18. OXAZEPAM [Concomitant]
     Active Substance: OXAZEPAM
     Dosage: UNK, BID
     Dates: start: 20191228, end: 20191231

REACTIONS (4)
  - Bone marrow failure [Not Recovered/Not Resolved]
  - Vomiting [Not Recovered/Not Resolved]
  - Oedema peripheral [Recovering/Resolving]
  - Anaemia [Not Recovered/Not Resolved]

NARRATIVE: CASE EVENT DATE: 20190916
